FAERS Safety Report 5842564-7 (Version None)
Quarter: 2008Q3

REPORT INFORMATION
  Report Type: 
  Country: None (occurrence: None)
  Receive Date: 20080812
  Receipt Date: 20080731
  Transmission Date: 20090109
  Serious: Yes (Other)
  Sender: FDA-Public Use
  Company Number: JP-PFIZER INC-2008064541

PATIENT
  Age: 80 Year
  Sex: Female

DRUGS (1)
  1. SULPERAZON [Suspect]
     Indication: CHOLANGITIS ACUTE
     Route: 042

REACTIONS (1)
  - SHOCK [None]
